FAERS Safety Report 17955023 (Version 1)
Quarter: 2020Q2

REPORT INFORMATION
  Report Type: Spontaneous
  Country: US (occurrence: US)
  Receive Date: 20200629
  Receipt Date: 20200629
  Transmission Date: 20200714
  Serious: No
  Sender: FDA-Public Use
  Company Number: US-BEH-2020119149

PATIENT
  Sex: Female

DRUGS (2)
  1. HIZENTRA [Suspect]
     Active Substance: HUMAN IMMUNOGLOBULIN G
     Dosage: 20 GRAM, 6 INFUSION SITES
     Route: 065
  2. HIZENTRA [Suspect]
     Active Substance: HUMAN IMMUNOGLOBULIN G
     Dosage: 100 MILLILITER, IN 6 SITES
     Route: 065

REACTIONS (5)
  - Infusion site extravasation [Unknown]
  - Loss of personal independence in daily activities [Unknown]
  - Infusion site nodule [Unknown]
  - Infusion site pain [Unknown]
  - Infusion site swelling [Unknown]
